FAERS Safety Report 9190894 (Version 5)
Quarter: 2013Q4

REPORT INFORMATION
  Report Type: Report from Study
  Country: JP (occurrence: JP)
  Receive Date: 20130326
  Receipt Date: 20131030
  Transmission Date: 20140711
  Serious: Yes (Other)
  Sender: FDA-Public Use
  Company Number: JP-ROCHE-1206112

PATIENT
  Age: 70 Year
  Sex: Female

DRUGS (5)
  1. RANIBIZUMAB [Suspect]
     Indication: AGE-RELATED MACULAR DEGENERATION
     Dosage: LEFT EYE, FIRST INJECTION
     Route: 050
     Dates: start: 20110107
  2. RANIBIZUMAB [Suspect]
     Dosage: SECOND INJECTION
     Route: 050
     Dates: start: 20110216
  3. RANIBIZUMAB [Suspect]
     Dosage: THIRD INJECTION
     Route: 050
     Dates: start: 20110316
  4. AVASTIN [Suspect]
     Indication: PRODUCT USED FOR UNKNOWN INDICATION
     Dosage: SINGLE DOSE IN LEFT EYE (DOSE UNKNOWN)
     Route: 065
     Dates: start: 20110525, end: 20110907
  5. MOXIFLOXACIN HYDROCHLORIDE [Concomitant]
     Route: 065
     Dates: start: 201101, end: 201103

REACTIONS (1)
  - Retinal haemorrhage [Recovering/Resolving]
